FAERS Safety Report 6026986-X (Version None)
Quarter: 2009Q1

REPORT INFORMATION
  Report Type: 
  Country: None (occurrence: None)
  Receive Date: 20090105
  Receipt Date: 20081224
  Transmission Date: 20090719
  Serious: Yes (Death)
  Sender: FDA-Public Use
  Company Number: JP-PFIZER INC-2009150194

PATIENT

DRUGS (1)
  1. SELARA [Suspect]
     Route: 048
     Dates: start: 20081201

REACTIONS (1)
  - DEATH [None]
